FAERS Safety Report 4931415-0 (Version None)
Quarter: 2006Q1

REPORT INFORMATION
  Report Type: 
  Country: None (occurrence: None)
  Receive Date: 20060228
  Receipt Date: 20060213
  Transmission Date: 20060701
  Serious: Yes (Death)
  Sender: FDA-Public Use
  Company Number: 2006S1001311

PATIENT
  Age: 43 Year
  Sex: Female

DRUGS (1)
  1. CLOZAPINE [Suspect]
     Dosage: 600 MG;QD;ORAL
     Route: 048
     Dates: start: 20060101, end: 20060201

REACTIONS (1)
  - NEOPLASM MALIGNANT [None]
